FAERS Safety Report 6828736-3 (Version None)
Quarter: 2010Q3

REPORT INFORMATION
  Report Type: 
  Country: None (occurrence: None)
  Receive Date: 20100709
  Receipt Date: 20070220
  Transmission Date: 20110219
  Serious: No
  Sender: FDA-Public Use
  Company Number: US-PFIZER INC-2007014139

PATIENT
  Sex: Female
  Weight: 57.61 kg

DRUGS (10)
  1. CHANTIX [Suspect]
     Indication: SMOKING CESSATION THERAPY
     Dates: start: 20070201
  2. LIPITOR [Concomitant]
  3. ATENOLOL [Concomitant]
  4. WELLBUTRIN [Concomitant]
  5. EVISTA [Concomitant]
  6. ZETIA [Concomitant]
  7. NEXIUM [Concomitant]
  8. ZELNORM [Concomitant]
  9. CALCIUM CARBONATE [Concomitant]
  10. VITAMINS [Concomitant]

REACTIONS (1)
  - NAUSEA [None]
